FAERS Safety Report 4366492-1 (Version None)
Quarter: 2004Q2

REPORT INFORMATION
  Report Type: 
  Country: None (occurrence: None)
  Receive Date: 20040527
  Receipt Date: 20040422
  Transmission Date: 20050107
  Serious: Yes (Hospitalization)
  Sender: FDA-Public Use
  Company Number: US-BRISTOL-MYERS SQUIBB COMPANY-12568184

PATIENT
  Age: 45 Year
  Sex: Male
  Weight: 54 kg

DRUGS (9)
  1. ERBITUX [Suspect]
     Indication: COLON CANCER METASTATIC
     Dates: start: 20040419, end: 20040419
  2. BENADRYL [Concomitant]
     Indication: PREMEDICATION
     Dates: start: 20040419, end: 20040419
  3. NORVASC [Concomitant]
  4. NEXIUM [Concomitant]
  5. OXYCONTIN [Concomitant]
  6. DIPHENOXYLATE [Concomitant]
  7. MAGNESIUM [Concomitant]
  8. POTASSIUM [Concomitant]
  9. MULTI-VITAMIN [Concomitant]

REACTIONS (5)
  - CHILLS [None]
  - PRURITUS [None]
  - PYREXIA [None]
  - THROAT TIGHTNESS [None]
  - VOMITING [None]
